FAERS Safety Report 5671661-4 (Version None)
Quarter: 2008Q2

REPORT INFORMATION
  Report Type: 
  Country: None (occurrence: None)
  Receive Date: 20080227
  Receipt Date: 20070227
  Transmission Date: 20081010
  Serious: Yes (Other)
  Sender: FDA-Public Use
  Company Number: CHPA2007US03136

PATIENT
  Sex: Male

DRUGS (1)
  1. TRANSDERM-SCOP (NCH)(HYOSCINE HYDROBROMIDE) TRANS-THERAPEUTIC-SYSTEM [Suspect]

REACTIONS (1)
  - DRUG WITHDRAWAL SYNDROME [None]
